FAERS Safety Report 21425934 (Version 6)
Quarter: 2023Q1

REPORT INFORMATION
  Report Type: Report from Study
  Country: US (occurrence: US)
  Receive Date: 20221008
  Receipt Date: 20230329
  Transmission Date: 20230418
  Serious: Yes (Hospitalization, Other)
  Sender: FDA-Public Use
  Company Number: US-ABBVIE-21K-163-4163847-00

PATIENT
  Age: 71 Year
  Sex: Female

DRUGS (8)
  1. HUMIRA [Suspect]
     Active Substance: ADALIMUMAB
     Indication: Crohn^s disease
     Dosage: CITRATE FREE?STRENGTH: 40 MILLIGRAM
     Route: 058
     Dates: start: 20151001
  2. HUMIRA [Suspect]
     Active Substance: ADALIMUMAB
     Dosage: CITRATE FREE?STRENGTH: 40 MILLIGRAM
     Route: 058
     Dates: start: 20160117
  3. HUMIRA [Suspect]
     Active Substance: ADALIMUMAB
     Dosage: CITRATE FREE?STRENGTH: 40 MILLIGRAM
     Route: 058
     Dates: start: 20151001
  4. HUMIRA [Suspect]
     Active Substance: ADALIMUMAB
     Dosage: CITRATE FREE?STRENGTH: 40 MILLIGRAM
     Route: 058
  5. HUMIRA [Suspect]
     Active Substance: ADALIMUMAB
     Dosage: CITRATE FREE?STRENGTH: 40 MILLIGRAM
     Route: 058
  6. MODERNA COVID-19 VACCINE [Suspect]
     Active Substance: ELASOMERAN
     Indication: COVID-19 immunisation
     Dosage: SECOND DOSE, ONE IN ONCE
     Route: 030
     Dates: start: 20210408, end: 20210408
  7. MODERNA COVID-19 VACCINE [Suspect]
     Active Substance: ELASOMERAN
     Indication: COVID-19 immunisation
     Dosage: BOOSTER DOSE, ONE IN ONCE
     Route: 030
     Dates: start: 20211103, end: 20211103
  8. MODERNA COVID-19 VACCINE [Suspect]
     Active Substance: ELASOMERAN
     Indication: COVID-19 immunisation
     Dosage: FIRST DOSE, ONE IN ONCE
     Route: 030
     Dates: start: 20210311, end: 20210311

REACTIONS (47)
  - Knee operation [Unknown]
  - Blood cholesterol increased [Unknown]
  - Tinnitus [Unknown]
  - Spinal operation [Unknown]
  - Musculoskeletal discomfort [Unknown]
  - Increased upper airway secretion [Not Recovered/Not Resolved]
  - Diarrhoea [Unknown]
  - Increased bronchial secretion [Unknown]
  - Hiatus hernia [Unknown]
  - Shoulder operation [Unknown]
  - Abdominal pain upper [Unknown]
  - Oral herpes [Unknown]
  - Dizziness [Unknown]
  - Nail growth abnormal [Unknown]
  - Hospitalisation [Unknown]
  - Pyrexia [Unknown]
  - Large intestine polyp [Unknown]
  - Post procedural complication [Unknown]
  - Insomnia [Unknown]
  - Joint range of motion decreased [Unknown]
  - Meniscus injury [Unknown]
  - Sinus disorder [Unknown]
  - Vaccination site pain [Recovered/Resolved]
  - Vaccination site pain [Recovered/Resolved]
  - Vaccination site pain [Recovered/Resolved]
  - Back disorder [Unknown]
  - Scab [Unknown]
  - Lower limb fracture [Unknown]
  - Nasal septum deviation [Unknown]
  - Joint instability [Unknown]
  - Emphysema [Unknown]
  - Cyst [Unknown]
  - Adhesion [Unknown]
  - Upper-airway cough syndrome [Unknown]
  - Joint stiffness [Unknown]
  - Fall [Unknown]
  - Pain [Recovered/Resolved]
  - Crohn^s disease [Unknown]
  - Urinary tract infection [Unknown]
  - Pain [Unknown]
  - Abdominal discomfort [Unknown]
  - Arthralgia [Not Recovered/Not Resolved]
  - Lip blister [Unknown]
  - Sneezing [Unknown]
  - Abdominal distension [Unknown]
  - Nail operation [Unknown]
  - Back pain [Unknown]

NARRATIVE: CASE EVENT DATE: 20210311
